FAERS Safety Report 18696474 (Version 1)
Quarter: 2021Q1

REPORT INFORMATION
  Report Type: Spontaneous
  Country: US (occurrence: US)
  Receive Date: 20210104
  Receipt Date: 20210104
  Transmission Date: 20210419
  Serious: No
  Sender: FDA-Public Use
  Company Number: US-UPSHER-SMITH LABORATORIES, LLC-2020USL00472

PATIENT
  Age: 99 Year
  Sex: Female
  Weight: 45.8 kg

DRUGS (8)
  1. METOPROLOL. [Concomitant]
     Active Substance: METOPROLOL
  2. PANTOPRAZOLE [Concomitant]
     Active Substance: PANTOPRAZOLE
  3. KLOR?CON M [Suspect]
     Active Substance: POTASSIUM CHLORIDE
     Indication: HYPOKALAEMIA
     Dosage: 20 MEQ, ONCE
     Route: 048
     Dates: start: 20200803, end: 20200803
  4. FAMOTIDINE. [Concomitant]
     Active Substance: FAMOTIDINE
  5. FUROSEMIDE. [Concomitant]
     Active Substance: FUROSEMIDE
  6. APIXABAN [Concomitant]
     Active Substance: APIXABAN
  7. DIGOXIN. [Concomitant]
     Active Substance: DIGOXIN
  8. LISINOPRIL. [Concomitant]
     Active Substance: LISINOPRIL

REACTIONS (2)
  - Hyperkalaemia [Recovered/Resolved]
  - Cough [Recovered/Resolved]

NARRATIVE: CASE EVENT DATE: 202008
